FAERS Safety Report 24104551 (Version 2)
Quarter: 2024Q3

REPORT INFORMATION
  Report Type: Spontaneous
  Country: FR (occurrence: FR)
  Receive Date: 20240717
  Receipt Date: 20240920
  Transmission Date: 20241017
  Serious: Yes (Other)
  Sender: NOVARTIS
  Company Number: FR-002147023-NVSC2024FR144258

PATIENT
  Sex: Male

DRUGS (1)
  1. ILARIS [Suspect]
     Active Substance: CANAKINUMAB
     Indication: Still^s disease
     Dosage: UNK
     Route: 065

REACTIONS (5)
  - Haemophagocytic lymphohistiocytosis [Unknown]
  - Blood disorder [Unknown]
  - Skin disorder [Unknown]
  - Product use issue [Unknown]
  - Treatment failure [Unknown]
